FAERS Safety Report 5549280-X (Version None)
Quarter: 2007Q4

REPORT INFORMATION
  Report Type: 
  Country: None (occurrence: None)
  Receive Date: 20071211
  Receipt Date: 20071203
  Transmission Date: 20080405
  Serious: Yes (Hospitalization)
  Sender: FDA-Public Use
  Company Number: US-ELI_LILLY_AND_COMPANY-US200710004307

PATIENT
  Sex: Male
  Weight: 111 kg

DRUGS (11)
  1. BYETTA [Suspect]
     Indication: TYPE 2 DIABETES MELLITUS
     Dosage: 5 UG, 2/D
     Route: 058
     Dates: start: 20070701, end: 20070731
  2. BYETTA [Suspect]
     Dosage: 10 UG, 2/D
     Route: 058
     Dates: start: 20070801, end: 20071017
  3. PROZAC [Concomitant]
     Indication: BIPOLAR DISORDER
     Dosage: 40 MG, DAILY (1/D)
     Dates: start: 20020101
  4. LIPITOR [Concomitant]
     Indication: BLOOD CHOLESTEROL INCREASED
     Dosage: 20 MG, DAILY (1/D)
     Dates: start: 20030101
  5. ATENOLOL [Concomitant]
     Indication: BLOOD PRESSURE INCREASED
     Dosage: 50 MG, DAILY (1/D)
     Dates: start: 20030101
  6. DIOVAN [Concomitant]
     Indication: BLOOD PRESSURE INCREASED
     Dosage: 160 MG, DAILY (1/D)
     Dates: start: 20070301
  7. NOVOLOG [Concomitant]
     Indication: TYPE 2 DIABETES MELLITUS
     Dosage: 15 U, 3/D
     Dates: start: 20010101
  8. LANTUS [Concomitant]
     Indication: TYPE 2 DIABETES MELLITUS
     Dosage: 50 U, EACH EVENING
     Dates: start: 20010101
  9. SEROQUEL [Concomitant]
     Indication: BIPOLAR DISORDER
     Dosage: 300 MG, 2/D
     Dates: start: 20000101
  10. WELLBUTRIN [Concomitant]
     Indication: BIPOLAR DISORDER
     Dosage: 300 MG, DAILY (1/D)
     Dates: start: 20020101
  11. NEURONTIN [Concomitant]
     Indication: BIPOLAR DISORDER
     Dosage: 300 MG, 3/D

REACTIONS (7)
  - ABDOMINAL DISTENSION [None]
  - ABDOMINAL PAIN [None]
  - CONSTIPATION [None]
  - NAUSEA [None]
  - ORAL DISORDER [None]
  - ORAL NEOPLASM [None]
  - VOMITING [None]
